FAERS Safety Report 14018184 (Version 1)
Quarter: 2017Q3

REPORT INFORMATION
  Report Type: Spontaneous
  Country: US (occurrence: US)
  Receive Date: 20170928
  Receipt Date: 20170928
  Transmission Date: 20171128
  Serious: No
  Sender: FDA-Public Use
  Company Number: US-LEO PHARMA-304810

PATIENT
  Age: 62 Year
  Sex: Female

DRUGS (1)
  1. PICATO [Suspect]
     Active Substance: INGENOL MEBUTATE
     Indication: SKIN DISCOLOURATION
     Route: 061
     Dates: start: 20170922, end: 20170922

REACTIONS (6)
  - Product use in unapproved indication [Unknown]
  - Application site exfoliation [Recovering/Resolving]
  - Application site pain [Recovered/Resolved]
  - Application site erythema [Recovering/Resolving]
  - Application site vesicles [Recovering/Resolving]
  - Application site pustules [Recovering/Resolving]

NARRATIVE: CASE EVENT DATE: 20170923
